FAERS Safety Report 7864594-6 (Version None)
Quarter: 2011Q4

REPORT INFORMATION
  Report Type: 
  Country: None (occurrence: None)
  Receive Date: 20111028
  Receipt Date: 20110207
  Transmission Date: 20120403
  Serious: No
  Sender: FDA-Public Use
  Company Number: US-GLAXOSMITHKLINE-A0912743A

PATIENT
  Age: 44 Year
  Sex: Female
  Weight: 51.8 kg

DRUGS (2)
  1. SUMATRIPTAN SUCCINATE [Suspect]
     Indication: MIGRAINE
     Dosage: 5MG AS REQUIRED
     Route: 045
     Dates: start: 20110201, end: 20110201
  2. CELEXA [Concomitant]
     Indication: ANXIETY
     Dosage: 30MGD PER DAY
     Dates: start: 20110101

REACTIONS (3)
  - CHEST DISCOMFORT [None]
  - PARAESTHESIA [None]
  - CHEST PAIN [None]
